FAERS Safety Report 4426071-4 (Version None)
Quarter: 2004Q3

REPORT INFORMATION
  Report Type: 
  Country: None (occurrence: None)
  Receive Date: 20040811
  Receipt Date: 20040621
  Transmission Date: 20050211
  Serious: Yes (Death, Hospitalization)
  Sender: FDA-Public Use
  Company Number: S04-FRA-02703-01

PATIENT
  Age: 80 Year
  Sex: Male

DRUGS (11)
  1. SEROPRAM(CITALOPRAM HYDROBROMIDE) [Suspect]
     Dosage: 20 MG QD PO
     Route: 048
     Dates: start: 20040325
  2. LOXAPAC (LOXAPINE SUCCINATE) [Suspect]
     Dosage: 3 MG TID PO
     Route: 048
     Dates: start: 20040325
  3. XANAX [Suspect]
     Dosage: 0.25 MG TID PO
     Route: 048
     Dates: start: 20040325
  4. XATRAL (ALFUZOSIN) [Suspect]
     Dosage: 5 MG QDPO
     Route: 048
     Dates: start: 20040325
  5. DI-ANTALVIC [Concomitant]
  6. REMINYL [Concomitant]
  7. VALPROATE SODIUM [Concomitant]
  8. XALATAN [Concomitant]
  9. ATARAX [Concomitant]
  10. EQUANIL [Concomitant]
  11. PERMIXON (SERENOA REPENS) [Concomitant]

REACTIONS (5)
  - AGITATION [None]
  - CEREBRAL HAEMORRHAGE [None]
  - CEREBROVASCULAR ACCIDENT [None]
  - LOSS OF CONSCIOUSNESS [None]
  - MENINGORRHAGIA [None]
